FAERS Safety Report 6856191-6 (Version None)
Quarter: 2010Q2

REPORT INFORMATION
  Report Type: 
  Country: None (occurrence: None)
  Receive Date: 20100629
  Receipt Date: 20100520
  Transmission Date: 20101027
  Serious: No
  Sender: FDA-Public Use
  Company Number: US-WYE-H15278610

PATIENT
  Age: 50 Year
  Sex: Female
  Weight: 72.64 kg

DRUGS (7)
  1. PRISTIQ [Suspect]
     Indication: DEPRESSION
     Dosage: CRUSHED TABLETS AND TOOK THEM WITH APPLESAUCE^, ORAL; 50 MG 1X PER 1 DAY, ORAL
     Route: 048
     Dates: start: 20100422, end: 20100501
  2. PRISTIQ [Suspect]
     Indication: DEPRESSION
     Dosage: CRUSHED TABLETS AND TOOK THEM WITH APPLESAUCE^, ORAL; 50 MG 1X PER 1 DAY, ORAL
     Route: 048
     Dates: start: 20100520
  3. PRISTIQ [Suspect]
  4. PROZAC [Concomitant]
  5. AMBIEN [Concomitant]
  6. XANAX [Concomitant]
  7. NEXIUM [Concomitant]

REACTIONS (3)
  - ANXIETY [None]
  - DRUG INEFFECTIVE [None]
  - WRONG TECHNIQUE IN DRUG USAGE PROCESS [None]
